FAERS Safety Report 6199074-X (Version None)
Quarter: 2009Q2

REPORT INFORMATION
  Report Type: 
  Country: None (occurrence: None)
  Receive Date: 20090522
  Receipt Date: 20090514
  Transmission Date: 20091009
  Serious: Yes (Life-Threatening, Hospitalization)
  Sender: FDA-Public Use
  Company Number: CH-WYE-G03676909

PATIENT
  Age: 64 Year
  Sex: Female

DRUGS (3)
  1. EFFEXOR [Suspect]
     Indication: DEPRESSION
     Route: 048
     Dates: end: 20090429
  2. NEXIUM [Concomitant]
     Route: 048
  3. WELLBUTRIN [Suspect]
     Indication: DEPRESSION
     Route: 048
     Dates: start: 20090429, end: 20090502

REACTIONS (10)
  - ARRHYTHMIA [None]
  - CARDIAC ARREST [None]
  - CHOKING [None]
  - CONCUSSION [None]
  - DEPRESSED LEVEL OF CONSCIOUSNESS [None]
  - DRUG INEFFECTIVE [None]
  - LISTLESS [None]
  - PRESYNCOPE [None]
  - SYNCOPE [None]
  - VOMITING [None]
